FAERS Safety Report 8203784-X (Version None)
Quarter: 2012Q1

REPORT INFORMATION
  Report Type: 
  Country: None (occurrence: None)
  Receive Date: 20120313
  Receipt Date: 20120227
  Transmission Date: 20120608
  Serious: Yes (Hospitalization)
  Sender: FDA-Public Use
  Company Number: FR-CELGENEUS-056-21880-11123550

PATIENT
  Sex: Male

DRUGS (10)
  1. BACTRIM [Suspect]
     Route: 048
     Dates: start: 20111213, end: 20111227
  2. NICARDIPINE HYDROCHLORIDE [Concomitant]
     Indication: HYPERTENSION
     Route: 048
  3. DEXAMETHASONE [Suspect]
     Indication: MULTIPLE MYELOMA
     Route: 065
     Dates: start: 20111213, end: 20111224
  4. REVLIMID [Suspect]
     Indication: MULTIPLE MYELOMA
     Route: 048
     Dates: start: 20111213, end: 20111226
  5. PINTACARINATE [Concomitant]
     Route: 065
     Dates: start: 20111227
  6. AMOXICILLIN TRIHYDRATE [Suspect]
     Route: 048
     Dates: start: 20111213
  7. ESCITALOPRAM OXALATE [Concomitant]
     Indication: DEPRESSION
     Route: 065
     Dates: start: 20120210
  8. LOVENOX [Concomitant]
     Indication: THROMBOSIS PROPHYLAXIS
     Dosage: 0.4
     Route: 065
     Dates: start: 20111213
  9. BORTEZOMIB [Suspect]
     Indication: MULTIPLE MYELOMA
     Route: 065
     Dates: start: 20111213, end: 20111223
  10. VALACYCLOVIR HYDROCHLORIDE [Concomitant]
     Indication: ANTIVIRAL PROPHYLAXIS
     Route: 048
     Dates: start: 20111213

REACTIONS (2)
  - RASH [None]
  - HEPATITIS [None]
